FAERS Safety Report 4595702-0 (Version None)
Quarter: 2005Q1

REPORT INFORMATION
  Report Type: 
  Country: None (occurrence: None)
  Receive Date: 20050224
  Receipt Date: 20050224
  Transmission Date: 20050727
  Serious: Yes (Life-Threatening)
  Sender: FDA-Public Use
  Company Number: None

PATIENT
  Sex: Female
  Weight: 70.3075 kg

DRUGS (1)
  1. ATROVENT [Suspect]
     Indication: RHINITIS
     Dosage: 2 SPRAY EACH NOSTAL DAILY [CONTINUES LONG TERM]

REACTIONS (1)
  - DIZZINESS [None]
